FAERS Safety Report 6316684-7 (Version None)
Quarter: 2009Q3

REPORT INFORMATION
  Report Type: 
  Country: None (occurrence: None)
  Receive Date: 20090820
  Receipt Date: 20090811
  Transmission Date: 20100115
  Serious: Yes (Hospitalization, Other)
  Sender: FDA-Public Use
  Company Number: US-MERCK-0903USA01375

PATIENT
  Age: 59 Year
  Sex: Female

DRUGS (6)
  1. FOSAMAX [Suspect]
     Indication: OSTEOPOROSIS PROPHYLAXIS
     Route: 048
     Dates: start: 19980101, end: 20080101
  2. FOSAMAX [Suspect]
     Route: 048
     Dates: start: 19980101, end: 20080101
  3. FOSAMAX [Suspect]
     Route: 048
     Dates: start: 20050101
  4. PREVACID NAPRAPAC 250 (COPACKAGED) [Concomitant]
     Route: 065
     Dates: start: 20050101
  5. SYNTHROID [Concomitant]
     Route: 065
     Dates: start: 19940101
  6. FOSAMAX PLUS D [Suspect]
     Indication: OSTEOPOROSIS PROPHYLAXIS
     Route: 048
     Dates: start: 19980101, end: 20080101

REACTIONS (1)
  - FEMUR FRACTURE [None]
